FAERS Safety Report 7579850-9 (Version None)
Quarter: 2011Q2

REPORT INFORMATION
  Report Type: 
  Country: None (occurrence: None)
  Receive Date: 20110629
  Receipt Date: 20110615
  Transmission Date: 20111010
  Serious: Yes (Hospitalization)
  Sender: FDA-Public Use
  Company Number: IT-RANBAXY-2011R1-45500

PATIENT
  Sex: Female

DRUGS (4)
  1. PANTOPRAZOLE SODIUM [Concomitant]
     Indication: GASTRITIS
     Dosage: 40 MG, UNK
     Route: 048
     Dates: start: 20090101, end: 20110605
  2. LORAZEPAM [Concomitant]
     Indication: DEPRESSION
     Dosage: 5 MG, UNK
     Route: 048
     Dates: start: 20090101, end: 20110605
  3. AMOXICILLIN [Suspect]
     Indication: TOOTH ABSCESS
     Dosage: 2 G, TOTAL.
     Route: 048
     Dates: start: 20110604, end: 20110606
  4. PAROXETINE HCL [Concomitant]
     Indication: DEPRESSION
     Dosage: 20 MG, UNK
     Route: 048
     Dates: start: 20090101, end: 20110605

REACTIONS (1)
  - ANGIOEDEMA [None]
